FAERS Safety Report 5712241-1 (Version None)
Quarter: 2008Q2

REPORT INFORMATION
  Report Type: 
  Country: None (occurrence: None)
  Receive Date: 20080418
  Receipt Date: 20080415
  Transmission Date: 20081010
  Serious: Yes (Other)
  Sender: FDA-Public Use
  Company Number: 2008SP004542

PATIENT
  Age: 35 Year
  Sex: Male
  Weight: 65.7716 kg

DRUGS (3)
  1. DRIXORAL COLD AND ALLERGY [Suspect]
     Indication: SINUS DISORDER
     Dosage: ONCE ;PO
     Route: 048
  2. FLONASE [Concomitant]
  3. ACTIFED [Concomitant]

REACTIONS (6)
  - FEAR [None]
  - HEART RATE IRREGULAR [None]
  - NIGHTMARE [None]
  - PALPITATIONS [None]
  - SUICIDAL IDEATION [None]
  - WRONG TECHNIQUE IN DRUG USAGE PROCESS [None]
